FAERS Safety Report 9656739 (Version 1)
Quarter: 2013Q4

REPORT INFORMATION
  Report Type: Spontaneous
  Country: GB (occurrence: None)
  Receive Date: 20131018
  Receipt Date: 20131018
  Transmission Date: 20140711
  Serious: Yes (Other)
  Sender: FDA-Public Use
  Company Number: 2013038407

PATIENT
  Sex: Female

DRUGS (2)
  1. RHOPHYLAC [Suspect]
     Dosage: STANDARD DOSE
     Dates: start: 20131011
  2. MMR VACCINE [Suspect]
     Dates: start: 20131011

REACTIONS (1)
  - Labelled drug-drug interaction medication error [None]
